FAERS Safety Report 8221741-4 (Version None)
Quarter: 2012Q1

REPORT INFORMATION
  Report Type: 
  Country: None (occurrence: None)
  Receive Date: 20120320
  Receipt Date: 20120305
  Transmission Date: 20120608
  Serious: Yes (Hospitalization, Other)
  Sender: FDA-Public Use
  Company Number: US-WATSON-2012-04039

PATIENT
  Sex: Female
  Weight: 54.422 kg

DRUGS (5)
  1. DICYCLOMINE HCL [Suspect]
     Indication: DIARRHOEA
     Dosage: UNK
     Route: 065
  2. WELCHOL [Concomitant]
     Indication: BLOOD CHOLESTEROL INCREASED
     Dosage: 225 MG, UNK
     Route: 065
  3. CHANTIX [Suspect]
     Indication: SMOKING CESSATION THERAPY
     Dosage: UNK
     Route: 065
  4. ZYPREXA [Concomitant]
     Indication: ANXIETY
     Dosage: 15 MG, UNK
     Route: 065
  5. ZYPREXA [Concomitant]
     Indication: BIPOLAR DISORDER

REACTIONS (8)
  - IRRITABLE BOWEL SYNDROME [None]
  - ANXIETY [None]
  - DRUG INEFFECTIVE [None]
  - WEIGHT DECREASED [None]
  - TOBACCO USER [None]
  - DIARRHOEA [None]
  - MALAISE [None]
  - VISUAL IMPAIRMENT [None]
